FAERS Safety Report 9648573 (Version 5)
Quarter: 2014Q2

REPORT INFORMATION
  Report Type: Spontaneous
  Country: AT (occurrence: AT)
  Receive Date: 20131028
  Receipt Date: 20140526
  Transmission Date: 20141212
  Serious: Yes (Death, Life-Threatening, Hospitalization, Other)
  Sender: FDA-Public Use
  Company Number: AT-ASTRAZENECA-2013SE78753

PATIENT
  Age: 24620 Day
  Sex: Male
  Weight: 98 kg

DRUGS (7)
  1. BRILIQUE [Suspect]
     Indication: ISCHAEMIC CARDIOMYOPATHY
     Route: 048
     Dates: start: 20131019, end: 20131024
  2. BRILIQUE [Suspect]
     Indication: MYOCARDIAL ISCHAEMIA
     Route: 048
     Dates: start: 20131019, end: 20131024
  3. BRILIQUE [Suspect]
     Indication: ACUTE MYOCARDIAL INFARCTION
     Route: 048
     Dates: start: 20131019, end: 20131024
  4. SIMVASTATIN [Suspect]
     Indication: HYPERCHOLESTEROLAEMIA
     Route: 048
     Dates: end: 20131024
  5. SIMVASTATIN [Suspect]
     Indication: HYPERLIPIDAEMIA
     Route: 048
     Dates: end: 20131024
  6. THROMBO ASS [Concomitant]
     Indication: MYOCARDIAL ISCHAEMIA
  7. TEBOFORTAN [Concomitant]

REACTIONS (6)
  - Renal failure acute [Fatal]
  - Rhabdomyolysis [Fatal]
  - Transaminases increased [Fatal]
  - Ventricular tachycardia [Fatal]
  - Cardiac arrest [Fatal]
  - Somnolence [Unknown]
